FAERS Safety Report 8866987 (Version 1)
Quarter: 2012Q4

REPORT INFORMATION
  Report Type: 
  Country: US (occurrence: US)
  Receive Date: 20121025
  Receipt Date: 20121025
  Transmission Date: 20130627
  Serious: No
  Sender: FDA-Public Use
  Company Number: US-AMGEN-USASP2012014169

PATIENT
  Age: 61 Year
  Sex: Male
  Weight: 81.63 kg

DRUGS (10)
  1. ENBREL [Suspect]
     Indication: RHEUMATOID ARTHRITIS
     Dosage: 50 mg, qwk
     Route: 058
  2. CELEBREX [Concomitant]
     Dosage: 50 mg, UNK
     Route: 048
  3. METHOTREXATE [Concomitant]
     Dosage: 2.5 mg, UNK
     Route: 048
  4. FOLIC ACID [Concomitant]
     Dosage: 1 mg, UNK
     Route: 048
  5. VERAPAMIL [Concomitant]
     Dosage: 120 mg, UNK
     Route: 048
  6. TERAZOSIN [Concomitant]
     Dosage: 1 mg, UNK
     Route: 048
  7. ASPIRIN [Concomitant]
     Dosage: 81 mg, UNK
  8. ZYRTEC [Concomitant]
     Dosage: 10 mg, UNK
     Route: 048
  9. VITAMIN D /00107901/ [Concomitant]
     Dosage: 1000 IU, UNK
     Route: 048
  10. CALCIUM [Concomitant]
     Route: 048

REACTIONS (2)
  - Cough [Recovered/Resolved]
  - Nasopharyngitis [Recovered/Resolved]
